FAERS Safety Report 20857969 (Version 1)
Quarter: 2022Q2

REPORT INFORMATION
  Report Type: Spontaneous
  Country: US (occurrence: None)
  Receive Date: 20220521
  Receipt Date: 20220521
  Transmission Date: 20220721
  Serious: No
  Sender: FDA-Public Use
  Company Number: 2022A185454

PATIENT
  Age: 64 Year
  Sex: Female
  Weight: 88.5 kg

DRUGS (16)
  1. OMEPRAZOLE [Suspect]
     Active Substance: OMEPRAZOLE
     Dosage: SPLIT DOSE 2 DOSES BECAUSE 4MG IS THE MAX DOSE PER
     Route: 065
  2. PFIZER-BIONTECH COVID-19 VACCINE [Suspect]
     Active Substance: TOZINAMERAN
     Indication: COVID-19
     Dosage: UNKNOWN STRENGTH/VOLUME/DOSE INJECTION TO UPPER LEFT ARM
     Route: 065
     Dates: start: 20210327
  3. LEVOTHYROXINE [Concomitant]
     Active Substance: LEVOTHYROXINE
     Indication: Hypothyroidism
     Dosage: UNKNOWN
     Route: 065
  4. NIFEDIPINE [Concomitant]
     Active Substance: NIFEDIPINE
     Dosage: UNKNOWN
     Route: 065
  5. LOSARTAN [Concomitant]
     Active Substance: LOSARTAN
     Indication: Hypertension
     Dosage: UNKNOWN
     Route: 065
  6. MEMANTINE [Concomitant]
     Active Substance: MEMANTINE
     Indication: Gastrooesophageal reflux disease
     Dosage: UNKNOWN POSOLOGY
     Route: 065
  7. MEMANTINE [Concomitant]
     Active Substance: MEMANTINE
     Indication: Oesophageal spasm
     Dosage: UNKNOWN POSOLOGY
     Route: 065
  8. PANTOPRAZOLE [Concomitant]
     Active Substance: PANTOPRAZOLE
     Indication: Gastrooesophageal reflux disease
     Dosage: TWICE DIALY
     Route: 065
  9. MODAFINIL [Concomitant]
     Active Substance: MODAFINIL
     Indication: Narcolepsy
     Dosage: SPLIT DOSE 2 DOSES BECAUSE 4MG IS THE MAX DOSE PER THE FDA
     Route: 065
  10. ZYRTEC [Concomitant]
     Active Substance: CETIRIZINE HYDROCHLORIDE
     Dosage: TWICE A DAY RIGHT NOW, THINKING MAYBE SHE SHOULD TAKE 3 A DAY EVEN THOUGH THEY ARE 24 HOUR PILLS
     Route: 065
  11. AZELASTINE [Concomitant]
     Active Substance: AZELASTINE
     Indication: Mast cell activation syndrome
     Dosage: NASAL SPRAY TWICE DAILY
     Route: 045
  12. OLOPATADINE [Concomitant]
     Active Substance: OLOPATADINE
     Indication: Mast cell activation syndrome
     Dosage: EYE DROPS TWICE DAILY
     Route: 047
  13. NICOTINE TRANSDERMAL SYSTEM [Concomitant]
     Active Substance: NICOTINE
     Indication: Restless legs syndrome
     Dosage: 14MG PATCH WORN DURING WAKING HOURS,PEELS OFF 1 HOUR BEFORE SLEEP
     Route: 003
  14. CLONAZEPAM [Concomitant]
     Active Substance: CLONAZEPAM
     Dosage: UNKNOWN
     Route: 065
  15. MELATONIN [Concomitant]
     Active Substance: MELATONIN
     Dosage: 15MG PRETTY HIGH DOSE AND THE DOCTOR^S RECOMMENDATION IS NO MORE THAN THAT
     Route: 065
  16. GASTROCROM [Concomitant]
     Active Substance: CROMOLYN SODIUM
     Indication: Food intolerance
     Dosage: GASTRIC ORAL SOLUTION
     Route: 065

REACTIONS (4)
  - Pain in extremity [Unknown]
  - Drug ineffective [Unknown]
  - Lymphadenitis [Unknown]
  - Headache [Unknown]
